FAERS Safety Report 8319302-1 (Version None)
Quarter: 2012Q2

REPORT INFORMATION
  Report Type: 
  Country: None (occurrence: None)
  Receive Date: 20120427
  Receipt Date: 20120418
  Transmission Date: 20120825
  Serious: Yes (Other)
  Sender: FDA-Public Use
  Company Number: FR-VALEANT-2012VX001852

PATIENT
  Sex: Female

DRUGS (6)
  1. EPIRUBICIN [Suspect]
     Indication: BREAST CANCER
     Dosage: DOSE UNIT:100
     Route: 042
  2. FILGRASTIM [Concomitant]
     Route: 065
  3. FLUOROURACIL [Suspect]
     Indication: BREAST CANCER
     Dosage: DOSE UNIT:500
     Route: 042
  4. CYCLOPHOSPHAMIDE [Suspect]
     Indication: BREAST CANCER
     Dosage: DOSE UNIT:500
     Route: 042
  5. DOCETAXEL [Suspect]
     Indication: BREAST CANCER
     Dosage: DOSE UNIT:100
     Route: 042
  6. CORTICOSTEROIDS [Concomitant]
     Route: 065

REACTIONS (1)
  - SKIN TOXICITY [None]
